FAERS Safety Report 9177965 (Version 2)
Quarter: 2012Q4

REPORT INFORMATION
  Report Type: 
  Country: US (occurrence: US)
  Receive Date: 20121017
  Receipt Date: 20121120
  Transmission Date: 20130627
  Serious: Yes (Death, Life-Threatening, Hospitalization, Other)
  Sender: FDA-Public Use
  Company Number: US-CTI_01488_2012

PATIENT
  Age: 0 None
  Sex: Male
  Weight: .71 kg

DRUGS (1)
  1. CUROSURF [Suspect]
     Indication: ACUTE RESPIRATORY DISTRESS SYNDROME
     Dosage: DF

REACTIONS (2)
  - Sepsis neonatal [Fatal]
  - Necrotising colitis [Fatal]
